FAERS Safety Report 15983611 (Version 10)
Quarter: 2020Q4

REPORT INFORMATION
  Report Type: Other
  Country: DE (occurrence: DE)
  Receive Date: 20190220
  Receipt Date: 20201204
  Transmission Date: 20210113
  Serious: Yes (Hospitalization, Other)
  Sender: FDA-Public Use
  Company Number: DE-ROCHE-2229092

PATIENT
  Age: 37 Year
  Sex: Female

DRUGS (12)
  1. OCREVUS [Suspect]
     Active Substance: OCRELIZUMAB
     Route: 042
     Dates: start: 20201124
  2. METHIONIN [Concomitant]
     Active Substance: METHIONINE
     Dosage: 2-0-0
  3. SPASMEX (GERMANY) [Concomitant]
  4. OCREVUS [Suspect]
     Active Substance: OCRELIZUMAB
     Route: 042
     Dates: start: 20190815
  5. EFEROX [Concomitant]
     Active Substance: LEVOTHYROXINE SODIUM
     Dosage: 1-0-0
  6. PROPICUM [Concomitant]
     Active Substance: SODIUM PROPIONATE
     Dosage: 1-0-0
  7. SYMBIOLACT [Concomitant]
  8. OCREVUS [Suspect]
     Active Substance: OCRELIZUMAB
     Indication: RELAPSING-REMITTING MULTIPLE SCLEROSIS
     Route: 042
     Dates: start: 20181122
  9. CEFUROXIM [Suspect]
     Active Substance: CEFUROXIME
     Indication: NEPHRITIS
     Route: 042
  10. CITALOPRAM [Concomitant]
     Active Substance: CITALOPRAM HYDROBROMIDE
     Dosage: 1-0-0
  11. OCREVUS [Suspect]
     Active Substance: OCRELIZUMAB
     Route: 042
     Dates: start: 20200409
  12. DEKRISTOL [Concomitant]
     Active Substance: CHOLECALCIFEROL

REACTIONS (9)
  - Gingivitis [Recovered/Resolved]
  - Abdominal discomfort [Recovered/Resolved]
  - Clostridial infection [Recovered/Resolved]
  - Nasopharyngitis [Recovering/Resolving]
  - Infection [Unknown]
  - Nephritis [Recovered/Resolved]
  - Fatigue [Recovered/Resolved]
  - Fatigue [Recovered/Resolved]
  - Herpes virus infection [Recovered/Resolved]

NARRATIVE: CASE EVENT DATE: 20181122
